FAERS Safety Report 4334651-X (Version None)
Quarter: 2004Q2

REPORT INFORMATION
  Report Type: 
  Country: None (occurrence: None)
  Receive Date: 20040405
  Receipt Date: 20040322
  Transmission Date: 20050107
  Serious: Yes (Death, Hospitalization)
  Sender: FDA-Public Use
  Company Number: 2004205127US

PATIENT
  Age: 85 Year
  Sex: Female

DRUGS (13)
  1. CELEBREX [Suspect]
     Indication: BACK PAIN
     Dosage: 100 MG, QD, ORAL
     Route: 048
  2. LABETALOL HCL [Concomitant]
  3. ATORVASTATIN (ATORVASTATIN) [Concomitant]
  4. ISOSORBIDE MONONITRATE [Concomitant]
  5. AMIODARONE HCL [Concomitant]
  6. WARFARIN SODIUM [Concomitant]
  7. RANITIDINE [Concomitant]
  8. FUROSEMIDE [Concomitant]
  9. THYROXIN (LEVOTHYROXINE SODIUM) [Concomitant]
  10. ACETAMINOPHEN [Concomitant]
  11. DARVOCET-N 100 [Concomitant]
  12. VICODIN [Concomitant]
  13. PHENYTOIN [Concomitant]

REACTIONS (7)
  - CHEST X-RAY ABNORMAL [None]
  - HAEMOPTYSIS [None]
  - HEPATIC ENZYME INCREASED [None]
  - JAUNDICE [None]
  - NAUSEA [None]
  - TOXIC EPIDERMAL NECROLYSIS [None]
  - VOMITING [None]
